FAERS Safety Report 7055456-5 (Version None)
Quarter: 2010Q4

REPORT INFORMATION
  Report Type: 
  Country: None (occurrence: None)
  Receive Date: 20101021
  Receipt Date: 20101012
  Transmission Date: 20110411
  Serious: Yes (Other)
  Sender: FDA-Public Use
  Company Number: CH-BAYER-201042323GPV

PATIENT
  Age: 47 Year
  Sex: Female
  Weight: 52 kg

DRUGS (1)
  1. SORAFENIB [Suspect]
     Indication: GLIOBLASTOMA MULTIFORME
     Route: 048

REACTIONS (1)
  - DYSLIPIDAEMIA [None]
